FAERS Safety Report 10945323 (Version 4)
Quarter: 2015Q2

REPORT INFORMATION
  Report Type: Spontaneous
  Country: US (occurrence: US)
  Receive Date: 20150323
  Receipt Date: 20150603
  Transmission Date: 20150821
  Serious: Yes (Life-Threatening, Hospitalization, Other)
  Sender: FDA-Public Use
  Company Number: US-BAYER-2015-043768

PATIENT
  Age: 46 Year
  Sex: Female
  Weight: 65.49 kg

DRUGS (16)
  1. CIPROFLOXACIN. [Concomitant]
     Active Substance: CIPROFLOXACIN
     Indication: URINARY TRACT INFECTION
  2. YAZ [Suspect]
     Active Substance: DROSPIRENONE\ETHINYL ESTRADIOL
  3. PERCOCET [Concomitant]
     Active Substance: ACETAMINOPHEN\OXYCODONE HYDROCHLORIDE
  4. COLACE [Concomitant]
     Active Substance: DOCUSATE SODIUM
  5. OCELLA [Suspect]
     Active Substance: DROSPIRENONE\ETHINYL ESTRADIOL
  6. IRON [Concomitant]
     Active Substance: IRON
  7. SENOKOT [Concomitant]
     Active Substance: SENNOSIDES
  8. PROTONIX [Concomitant]
     Active Substance: PANTOPRAZOLE SODIUM
  9. AMBIEN [Concomitant]
     Active Substance: ZOLPIDEM TARTRATE
  10. TEMAZEPAM. [Concomitant]
     Active Substance: TEMAZEPAM
  11. ARGATROBAN. [Concomitant]
     Active Substance: ARGATROBAN
  12. YASMIN [Suspect]
     Active Substance: DROSPIRENONE\ETHINYL ESTRADIOL
     Dosage: UNK
     Dates: start: 200507, end: 20060605
  13. FERRLECIT [Concomitant]
     Active Substance: SODIUM FERRIC GLUCONATE COMPLEX
  14. RESTORIL [Concomitant]
     Active Substance: TEMAZEPAM
  15. VITAMIN B12 [Concomitant]
     Active Substance: CYANOCOBALAMIN
  16. MECLIZINE [Concomitant]
     Active Substance: MECLIZINE\MECLIZINE HYDROCHLORIDE
     Indication: VERTIGO POSITIONAL

REACTIONS (9)
  - Pulmonary embolism [None]
  - General physical health deterioration [None]
  - Pelvic venous thrombosis [None]
  - Injury [None]
  - Pain [None]
  - Cerebrovascular accident [None]
  - Emotional distress [None]
  - Anxiety [None]
  - Deep vein thrombosis [None]

NARRATIVE: CASE EVENT DATE: 20060605
